FAERS Safety Report 21420918 (Version 3)
Quarter: 2023Q1

REPORT INFORMATION
  Report Type: Report from Study
  Country: CA (occurrence: CA)
  Receive Date: 20221007
  Receipt Date: 20230201
  Transmission Date: 20230418
  Serious: Yes (Other)
  Sender: FDA-Public Use
  Company Number: CA-JNJFOC-20220825941

PATIENT
  Age: 27 Year
  Sex: Male
  Weight: 107 kg

DRUGS (2)
  1. REMICADE [Suspect]
     Active Substance: INFLIXIMAB
     Indication: Colitis ulcerative
     Dosage: V1EXPIRATION DATE 28-FEB-2025, V2 31-MAR-2025
     Route: 042
     Dates: start: 20210921
  2. REMICADE [Suspect]
     Active Substance: INFLIXIMAB
     Indication: Crohn^s disease
     Route: 042
     Dates: start: 20230118

REACTIONS (14)
  - Eye pain [Recovering/Resolving]
  - Drug ineffective [Unknown]
  - Crohn^s disease [Unknown]
  - Scleral hyperaemia [Unknown]
  - Eye inflammation [Not Recovered/Not Resolved]
  - Eye disorder [Not Recovered/Not Resolved]
  - Swelling of eyelid [Not Recovered/Not Resolved]
  - Dry eye [Recovering/Resolving]
  - Eye pruritus [Not Recovered/Not Resolved]
  - Eye injury [Unknown]
  - Decreased appetite [Unknown]
  - Asthenia [Unknown]
  - Fatigue [Unknown]
  - Off label use [Unknown]

NARRATIVE: CASE EVENT DATE: 20220101
